FAERS Safety Report 14714617 (Version 1)
Quarter: 2018Q2

REPORT INFORMATION
  Report Type: Spontaneous
  Country: DE (occurrence: DE)
  Receive Date: 20180404
  Receipt Date: 20180404
  Transmission Date: 20180711
  Serious: Yes (Other)
  Sender: FDA-Public Use
  Company Number: DE-TEVA-2018-DE-877736

PATIENT
  Age: 51 Year
  Sex: Male
  Weight: 85 kg

DRUGS (1)
  1. CIPROFLOXACIN. [Suspect]
     Active Substance: CIPROFLOXACIN
     Indication: HIDRADENITIS
     Dosage: 1-0-1
     Route: 048
     Dates: start: 201704

REACTIONS (5)
  - Fall [Unknown]
  - Spinal fracture [Unknown]
  - Feeling cold [Unknown]
  - Oedema [Unknown]
  - Muscular weakness [Unknown]

NARRATIVE: CASE EVENT DATE: 201708
